FAERS Safety Report 14333824 (Version 1)
Quarter: 2017Q4

REPORT INFORMATION
  Report Type: Spontaneous
  Country: MY (occurrence: MY)
  Receive Date: 20171228
  Receipt Date: 20171228
  Transmission Date: 20180321
  Serious: Yes (Other)
  Sender: FDA-Public Use
  Company Number: MY-IGSA-SR10005649

PATIENT
  Age: 40 Year
  Sex: Male
  Weight: 63 kg

DRUGS (3)
  1. ALPHANATE [Suspect]
     Active Substance: HUMAN COAGULATION FACTOR VIII/VON WILLEBRAND FACTOR COMPLEX
     Dosage: 1250 IU, QD
     Dates: start: 20161016, end: 20161017
  2. TRAMADOL. [Concomitant]
     Active Substance: TRAMADOL
     Dosage: 50 MG, UNK
  3. ALPHANATE [Suspect]
     Active Substance: HUMAN COAGULATION FACTOR VIII/VON WILLEBRAND FACTOR COMPLEX
     Indication: FACTOR VIII DEFICIENCY
     Dosage: 1500 IU, UNK
     Route: 042
     Dates: start: 20161018

REACTIONS (4)
  - Syncope [Recovering/Resolving]
  - Generalised tonic-clonic seizure [Recovering/Resolving]
  - Chills [Recovering/Resolving]
  - Pyrexia [Recovering/Resolving]

NARRATIVE: CASE EVENT DATE: 20161018
